FAERS Safety Report 4393421-7 (Version None)
Quarter: 2004Q3

REPORT INFORMATION
  Report Type: 
  Country: None (occurrence: None)
  Receive Date: 20040701
  Receipt Date: 20040618
  Transmission Date: 20050211
  Serious: Yes (Other)
  Sender: FDA-Public Use
  Company Number: 2004220341FR

PATIENT
  Age: 83 Year
  Sex: Male

DRUGS (8)
  1. CELEBREX [Suspect]
     Dosage: 200 MG, QD, ORAL
     Route: 048
  2. CORDARONE [Concomitant]
  3. LEVOTHYROXINE SODIUM [Concomitant]
  4. LASIX [Concomitant]
  5. PREVISCAN (FLUINDIONE) [Concomitant]
  6. RAMIPRIL [Concomitant]
  7. DIFFU K [Concomitant]
  8. KREDEX [Concomitant]

REACTIONS (1)
  - TESTICULAR SWELLING [None]
